FAERS Safety Report 6482946-6 (Version None)
Quarter: 2009Q4

REPORT INFORMATION
  Report Type: 
  Country: None (occurrence: None)
  Receive Date: 20091209
  Receipt Date: 20091203
  Transmission Date: 20100525
  Serious: Yes (Hospitalization)
  Sender: FDA-Public Use
  Company Number: ES-BRISTOL-MYERS SQUIBB COMPANY-14797682

PATIENT
  Age: 71 Year
  Sex: Male
  Weight: 82 kg

DRUGS (3)
  1. CETUXIMAB [Suspect]
     Indication: NON-SMALL CELL LUNG CANCER
     Dosage: STRENGTH 5 MG/ML
     Route: 042
     Dates: start: 20090908
  2. CISPLATIN [Suspect]
     Indication: NON-SMALL CELL LUNG CANCER
     Dosage: TAKEN ON DAY 1 OF 21 DAY CYCLE
     Route: 042
     Dates: start: 20090908
  3. VINORELBINE [Suspect]
     Indication: NON-SMALL CELL LUNG CANCER
     Dosage: TAKEN ON DAY 8 OF 21 DAY CYCLE
     Route: 042
     Dates: start: 20090908

REACTIONS (1)
  - PANCREATITIS [None]
